FAERS Safety Report 7913284-X (Version None)
Quarter: 2011Q4

REPORT INFORMATION
  Report Type: 
  Country: None (occurrence: None)
  Receive Date: 20111114
  Receipt Date: 20111109
  Transmission Date: 20120403
  Serious: Yes (Death)
  Sender: FDA-Public Use
  Company Number: SI-AMGEN-SVNCT2011055586

PATIENT
  Sex: Male

DRUGS (13)
  1. CINACALCET HYDROCHLORIDE [Suspect]
     Indication: HYPERPARATHYROIDISM SECONDARY
     Dosage: 60 MG, QD
     Route: 048
  2. TELMISARTAN [Concomitant]
     Dosage: 80 MG, BID
  3. ZEMPLAR [Concomitant]
     Dosage: 2 G, UNK
  4. SODIUM BICARBONATE [Concomitant]
     Dosage: 2 G, UNK
  5. ATORVASTATIN [Concomitant]
  6. CARVEDILOL [Concomitant]
  7. ULTOP [Concomitant]
  8. ZOLPIDEM TARTRATE [Concomitant]
     Dosage: 5 MG, UNK
  9. CALCIUM CARBONATE [Concomitant]
     Dosage: 3 G, UNK
  10. ALLOPURINOL [Concomitant]
  11. COMPLEX B [Concomitant]
  12. LACIPIL [Concomitant]
     Dosage: 4 MG, UNK
  13. FOSRENOL [Concomitant]
     Dosage: 750 UNK, UNK

REACTIONS (1)
  - DEATH [None]
